FAERS Safety Report 16934606 (Version 1)
Quarter: 2019Q4

REPORT INFORMATION
  Report Type: Spontaneous
  Country: US (occurrence: US)
  Receive Date: 20191018
  Receipt Date: 20191018
  Transmission Date: 20200122
  Serious: No
  Sender: FDA-Public Use
  Company Number: US-ASTRAZENECA-2019SF35803

PATIENT
  Sex: Female

DRUGS (1)
  1. BRILINTA [Suspect]
     Active Substance: TICAGRELOR
     Indication: MYOCARDIAL INFARCTION
     Route: 048

REACTIONS (7)
  - Fibromyalgia [Unknown]
  - Neuropathy peripheral [Unknown]
  - Arthritis [Unknown]
  - Malaise [Unknown]
  - Carpal tunnel syndrome [Unknown]
  - Asthma [Unknown]
  - Arthropathy [Unknown]
